FAERS Safety Report 12883084 (Version 1)
Quarter: 2016Q4

REPORT INFORMATION
  Report Type: Spontaneous
  Country: CH (occurrence: CH)
  Receive Date: 20161025
  Receipt Date: 20161025
  Transmission Date: 20170207
  Serious: Yes (Other)
  Sender: FDA-Public Use
  Company Number: CH-LPDUSPRD-20160929

PATIENT
  Age: 35 Year
  Sex: Female

DRUGS (1)
  1. FERINJECT [Suspect]
     Active Substance: FERRIC CARBOXYMALTOSE
     Dosage: 500 MG, 2 TOTAL
     Route: 065
     Dates: start: 201602

REACTIONS (2)
  - Serum ferritin increased [Unknown]
  - Liver disorder [Unknown]

NARRATIVE: CASE EVENT DATE: 201609
